FAERS Safety Report 7591774 (Version 3)
Quarter: 2014Q2

REPORT INFORMATION
  Report Type: Spontaneous
  Country: US (occurrence: US)
  Receive Date: 20100917
  Receipt Date: 20140509
  Transmission Date: 20141212
  Serious: No
  Sender: FDA-Public Use
  Company Number: US-ASTRAZENECA-2009SE16256

PATIENT
  Age: 47 Year
  Sex: Female
  Weight: 50.3 kg

DRUGS (7)
  1. SEROQUEL [Suspect]
     Indication: BIPOLAR DISORDER
     Dosage: 400 MG TWO TABLETS AT NIGHT
     Route: 048
     Dates: start: 2008, end: 2013
  2. SEROQUEL [Suspect]
     Indication: BIPOLAR DISORDER
     Route: 048
     Dates: start: 200903
  3. SEROQUEL [Suspect]
     Indication: BIPOLAR DISORDER
     Dosage: 400 MG TWO TABLETS, AT NIGHT
     Route: 048
     Dates: start: 201312, end: 20140328
  4. SEROQUEL [Suspect]
     Indication: BIPOLAR DISORDER
     Dosage: 400 MG, AT NIGHT
     Route: 048
     Dates: start: 20140328
  5. INDERAL [Concomitant]
     Indication: BLOOD PRESSURE ABNORMAL
     Route: 048
     Dates: start: 2007
  6. TEGRETOL [Concomitant]
     Indication: BIPOLAR DISORDER
     Route: 048
     Dates: start: 2012
  7. XANAX [Concomitant]
     Indication: ANXIETY
     Route: 048

REACTIONS (7)
  - Diarrhoea [Unknown]
  - Insomnia [Unknown]
  - Glaucoma [Unknown]
  - Constipation [Unknown]
  - Feeling abnormal [Unknown]
  - Intentional product misuse [Unknown]
  - Drug dose omission [Unknown]
